FAERS Safety Report 9624961 (Version 3)
Quarter: 2014Q1

REPORT INFORMATION
  Report Type: Spontaneous
  Country: US (occurrence: US)
  Receive Date: 20131016
  Receipt Date: 20140312
  Transmission Date: 20141002
  Serious: No
  Sender: FDA-Public Use
  Company Number: US-BIOGENIDEC-2013BI097749

PATIENT
  Age: 52 Year
  Sex: Female

DRUGS (1)
  1. TYSABRI [Suspect]
     Indication: MULTIPLE SCLEROSIS
     Route: 042
     Dates: start: 20120920

REACTIONS (7)
  - Back pain [Unknown]
  - Tinnitus [Unknown]
  - Fall [Recovered/Resolved]
  - Craniocerebral injury [Unknown]
  - Headache [Unknown]
  - Dizziness [Unknown]
  - Alcohol abuse [Unknown]
